FAERS Safety Report 6188034-0 (Version None)
Quarter: 2009Q2

REPORT INFORMATION
  Report Type: 
  Country: None (occurrence: None)
  Receive Date: 20090513
  Receipt Date: 20090504
  Transmission Date: 20091009
  Serious: Yes (Hospitalization, Other)
  Sender: FDA-Public Use
  Company Number: PHEH2008US01226

PATIENT
  Sex: Female

DRUGS (8)
  1. AREDIA [Suspect]
     Indication: METASTASES TO BONE
     Dosage: 90 MG IV OVER 2 HOURS
     Dates: start: 19960501
  2. ZOMETA [Suspect]
  3. COUMADIN [Concomitant]
  4. THALOMID [Concomitant]
     Dosage: 50 MG, QD
     Route: 048
  5. AXID [Concomitant]
     Dosage: 150 MG, BID
     Route: 048
  6. BACTRIM [Concomitant]
  7. CELEBREX [Concomitant]
     Dosage: 200 MG, QD
  8. DEXAMETHASONE 4MG TAB [Concomitant]
     Dosage: UNK
     Dates: start: 19950101, end: 19980501

REACTIONS (53)
  - ABSCESS JAW [None]
  - ACTIVITIES OF DAILY LIVING IMPAIRED [None]
  - ANAEMIA [None]
  - ANXIETY [None]
  - ASTHMA [None]
  - ATRIAL FIBRILLATION [None]
  - BACK DISORDER [None]
  - BONE DEBRIDEMENT [None]
  - BONE DISORDER [None]
  - BONE MARROW TRANSPLANT [None]
  - CARDIAC FAILURE CONGESTIVE [None]
  - CARDIAC PACEMAKER INSERTION [None]
  - CATARACT [None]
  - CENTRAL VENOUS CATHETERISATION [None]
  - CHARLES BONNET SYNDROME [None]
  - COLECTOMY [None]
  - COLON CANCER [None]
  - CONFUSIONAL STATE [None]
  - DEAFNESS NEUROSENSORY [None]
  - DENTAL FISTULA [None]
  - ENCEPHALOPATHY [None]
  - FACE OEDEMA [None]
  - FISTULA REPAIR [None]
  - GASTRITIS [None]
  - GINGIVAL INFECTION [None]
  - HYPOAESTHESIA [None]
  - INJURY [None]
  - INTRACRANIAL ANEURYSM [None]
  - JAW FRACTURE [None]
  - JAW OPERATION [None]
  - MACROGLOSSIA [None]
  - MASS [None]
  - MITRAL VALVE CALCIFICATION [None]
  - OSTEOMYELITIS [None]
  - OSTEONECROSIS [None]
  - OSTEOPENIA [None]
  - PAIN [None]
  - PAIN IN JAW [None]
  - PERIODONTAL DISEASE [None]
  - PHYSICAL DISABILITY [None]
  - PULMONARY EMBOLISM [None]
  - SEQUESTRECTOMY [None]
  - SICK SINUS SYNDROME [None]
  - SINUS OPERATION [None]
  - SINUSITIS [None]
  - SPEECH DISORDER [None]
  - SPINAL DISORDER [None]
  - SPINAL OSTEOARTHRITIS [None]
  - SUBARACHNOID HAEMORRHAGE [None]
  - TOOTH EXTRACTION [None]
  - TRANSIENT ISCHAEMIC ATTACK [None]
  - VENA CAVA FILTER INSERTION [None]
  - VERTIGO [None]
